FAERS Safety Report 9382799 (Version 1)
Quarter: 2013Q3

REPORT INFORMATION
  Report Type: Spontaneous
  Country: FR (occurrence: FR)
  Receive Date: 20130703
  Receipt Date: 20130703
  Transmission Date: 20140515
  Serious: Yes (Hospitalization)
  Sender: FDA-Public Use
  Company Number: FR-PFIZER INC-2013195645

PATIENT
  Age: 82 Year
  Sex: Female

DRUGS (3)
  1. EUPANTOL [Suspect]
     Dosage: UNK
     Route: 048
  2. HYTACAND [Interacting]
     Dosage: UNK
     Route: 048
  3. DAFLON [Concomitant]

REACTIONS (3)
  - Drug interaction [Unknown]
  - Fall [Recovered/Resolved]
  - Hyponatraemia [Recovered/Resolved]
